FAERS Safety Report 7897431-4 (Version None)
Quarter: 2011Q4

REPORT INFORMATION
  Report Type: 
  Country: None (occurrence: None)
  Receive Date: 20111107
  Receipt Date: 20111103
  Transmission Date: 20120403
  Serious: Yes (Life-Threatening)
  Sender: FDA-Public Use
  Company Number: DE-B.I. PHARMACEUTICALS,INC./RIDGEFIELD-2011-DE-06249DE

PATIENT
  Age: 17 Year
  Sex: Female
  Weight: 100 kg

DRUGS (4)
  1. KEPPRA [Concomitant]
  2. PANTOPRAZOLE [Concomitant]
     Indication: GASTRIC PH DECREASED
  3. AMITRIPTYLINE HCL [Concomitant]
     Indication: HEADACHE
  4. PRADAXA [Suspect]
     Dosage: 220 MG
     Dates: start: 20110401

REACTIONS (4)
  - HEADACHE [None]
  - THROMBOSIS [None]
  - ABDOMINAL PAIN UPPER [None]
  - CEREBRAL HAEMORRHAGE [None]
